FAERS Safety Report 9910328 (Version 2)
Quarter: 2014Q1

REPORT INFORMATION
  Report Type: Spontaneous
  Country: US (occurrence: US)
  Receive Date: 20140219
  Receipt Date: 20140228
  Transmission Date: 20141002
  Serious: No
  Sender: FDA-Public Use
  Company Number: US-009507513-1402USA009310

PATIENT
  Age: 93 Year
  Sex: Female

DRUGS (1)
  1. OXYTROL FOR WOMEN [Suspect]
     Indication: URINARY INCONTINENCE
     Dosage: UNK, UNKNOWN
     Route: 062

REACTIONS (3)
  - Dry mouth [Unknown]
  - Drug ineffective [Unknown]
  - Product quality issue [Unknown]
